FAERS Safety Report 10368250 (Version 1)
Quarter: 2014Q3

REPORT INFORMATION
  Report Type: Spontaneous
  Country: US (occurrence: US)
  Receive Date: 20140807
  Receipt Date: 20140807
  Transmission Date: 20150326
  Serious: Yes (Hospitalization)
  Sender: FDA-Public Use
  Company Number: US-009507513-1407USA012494

PATIENT
  Sex: Female
  Weight: 79.2 kg

DRUGS (1)
  1. NUVARING [Suspect]
     Active Substance: ETHINYL ESTRADIOL\ETONOGESTREL
     Indication: DYSFUNCTIONAL UTERINE BLEEDING
     Dosage: UNK
     Route: 067
     Dates: end: 20060502

REACTIONS (26)
  - Breast operation [Unknown]
  - Off label use [Unknown]
  - Back pain [Not Recovered/Not Resolved]
  - Headache [Unknown]
  - Mean cell volume decreased [Unknown]
  - Thrombocytosis [Unknown]
  - Debridement [Recovering/Resolving]
  - Haemorrhoid operation [Unknown]
  - Lip dry [Unknown]
  - Fatigue [Unknown]
  - Musculoskeletal disorder [Unknown]
  - Palpitations [Unknown]
  - Paraesthesia [Unknown]
  - Deep vein thrombosis [Unknown]
  - Chondroplasty [Recovering/Resolving]
  - Gastrooesophageal reflux disease [Unknown]
  - Urinary tract infection [Unknown]
  - Diabetes mellitus [Unknown]
  - Knee operation [Unknown]
  - Cryotherapy [Unknown]
  - Dry mouth [Unknown]
  - Intervertebral disc protrusion [Unknown]
  - Bladder neck operation [Unknown]
  - Cervical cyst [Unknown]
  - Constipation [Unknown]
  - Asthenia [Unknown]

NARRATIVE: CASE EVENT DATE: 200604
